FAERS Safety Report 10705280 (Version 2)
Quarter: 2015Q3

REPORT INFORMATION
  Report Type: Spontaneous
  Country: GB (occurrence: GB)
  Receive Date: 20150112
  Receipt Date: 20150901
  Transmission Date: 20151125
  Serious: Yes (Other)
  Sender: FDA-Public Use
  Company Number: GB-PFIZER INC-2015005862

PATIENT
  Age: 41 Year
  Sex: Female

DRUGS (6)
  1. LAMOTRIGINE. [Concomitant]
     Active Substance: LAMOTRIGINE
     Dosage: 300 MG, DAILY
  2. CARBAMAZEPINE. [Concomitant]
     Active Substance: CARBAMAZEPINE
     Dosage: 1200 MG, DAILY
  3. TOPIRAMATE. [Concomitant]
     Active Substance: TOPIRAMATE
     Dosage: 400 MG, DAILY
  4. FYCOMPA [Suspect]
     Active Substance: PERAMPANEL
     Dosage: 2 MG, 1X/DAY
     Route: 048
  5. LEVETIRACETAM. [Concomitant]
     Active Substance: LEVETIRACETAM
     Dosage: 1000 MG, DAILY
  6. DEPO-PROVERA [Suspect]
     Active Substance: MEDROXYPROGESTERONE ACETATE
     Dosage: UNK

REACTIONS (4)
  - Condition aggravated [Recovered/Resolved]
  - Metrorrhagia [Recovered/Resolved]
  - Abnormal behaviour [Recovered/Resolved]
  - Seizure [Recovered/Resolved]
